FAERS Safety Report 9361115 (Version 1)
Quarter: 2013Q2

REPORT INFORMATION
  Report Type: Spontaneous
  Country: US (occurrence: None)
  Receive Date: 20130618
  Receipt Date: 20130618
  Transmission Date: 20140414
  Serious: Yes (Hospitalization)
  Sender: FDA-Public Use
  Company Number: 2013-0953

PATIENT
  Age: 60 Year
  Sex: Male

DRUGS (10)
  1. KYPROLIS [Suspect]
     Indication: PLASMA CELL MYELOMA
     Dosage: 5.7143 MG/M2 (20 MG/M2, 2 IN 1 WK)
     Dates: start: 20130513
  2. MORPHINE [Concomitant]
  3. HYDROMORPHONE (HYDROMORPHONE) (HYDROMORPHONE) [Concomitant]
  4. AMBIEN (ZOLPIDEM TARTRATE) (ZOLPIDEM TARTRATE) [Concomitant]
  5. ZYRTEC (CETIRIZINE HYDROCHLORIDE) (CETIRIZINE HYDROCHLORIDE) [Concomitant]
  6. LEXAPRO (ESCITALOPRAM OXALATE) (ESCITALOPRAM OXALATE) [Concomitant]
  7. METOPROLOL (METOPROLOL) (METOPROLOL) [Concomitant]
  8. PROTONIX (PANTOPRAZOLE SODIUM SESQUIHYDRATE) (PANTOPRAZOLE SODIUM SESQUIHYDRATE) [Concomitant]
  9. DEXAMETHASONE (DEXAMETHASONE) (DEXAMETHASONE) [Concomitant]
  10. SENNA (SENNOSIDE A+B) (SENNOSIDE A+B) [Concomitant]

REACTIONS (4)
  - Diplopia [None]
  - Tremor [None]
  - Mental status changes [None]
  - Emphysema [None]
